FAERS Safety Report 4404683-1 (Version None)
Quarter: 2004Q3

REPORT INFORMATION
  Report Type: 
  Country: None (occurrence: None)
  Receive Date: 20040720
  Receipt Date: 20040712
  Transmission Date: 20050211
  Serious: Yes (Other)
  Sender: FDA-Public Use
  Company Number: 002008

PATIENT
  Age: 57 Year
  Sex: Female

DRUGS (3)
  1. MEDROXYPROGESTERONE ACETATE (MEDROXYPROGESTERONE ACETATE) TABLET, UNK [Suspect]
     Indication: HORMONE REPLACEMENT THERAPY
     Dates: start: 19900601, end: 19980801
  2. PREMARIN [Suspect]
     Indication: HORMONE REPLACEMENT THERAPY
     Dates: start: 19900601, end: 19980801
  3. PROVERA [Suspect]
     Indication: HORMONE REPLACEMENT THERAPY

REACTIONS (1)
  - BREAST CANCER [None]
